FAERS Safety Report 21836695 (Version 1)
Quarter: 2023Q1

REPORT INFORMATION
  Report Type: Spontaneous
  Country: US (occurrence: None)
  Receive Date: 20230106
  Receipt Date: 20230106
  Transmission Date: 20230418
  Serious: Yes (Hospitalization, Disabling)
  Sender: FDA-Public Use
  Company Number: None

PATIENT
  Age: 40 Year
  Sex: Female

DRUGS (11)
  1. DUPIXENT [Suspect]
     Active Substance: DUPILUMAB
     Indication: Asthma
     Dates: start: 20221003
  2. ALBUTEROL [Concomitant]
     Active Substance: ALBUTEROL
  3. DUONEB [Concomitant]
     Active Substance: ALBUTEROL SULFATE\IPRATROPIUM BROMIDE
  4. ESTRADIOL TRANSDERMAL SYSTEM [Concomitant]
     Active Substance: ESTRADIOL
  5. FLUTICASONE [Concomitant]
     Active Substance: FLUTICASONE
  6. LEVOCETIRIZINE [Concomitant]
     Active Substance: LEVOCETIRIZINE
  7. PHENTERMINE [Concomitant]
     Active Substance: PHENTERMINE
  8. PROGESTERONE [Concomitant]
     Active Substance: PROGESTERONE
  9. SPIRONOLACTONE [Concomitant]
  10. TOPIRAMATE [Concomitant]
     Active Substance: TOPIRAMATE
  11. TRELEGY ELLIPTA [Concomitant]
     Active Substance: FLUTICASONE FUROATE\UMECLIDINIUM BROMIDE\VILANTEROL TRIFENATATE

REACTIONS (3)
  - Body temperature increased [None]
  - Cough [None]
  - Asthma [None]

NARRATIVE: CASE EVENT DATE: 20230101
